FAERS Safety Report 6329364-9 (Version None)
Quarter: 2009Q3

REPORT INFORMATION
  Report Type: 
  Country: None (occurrence: None)
  Receive Date: 20090826
  Receipt Date: 20090819
  Transmission Date: 20100115
  Serious: Yes (Death, Life-Threatening)
  Sender: FDA-Public Use
  Company Number: GB-ELI_LILLY_AND_COMPANY-GB200908004318

PATIENT
  Age: 67 Year
  Sex: Female

DRUGS (5)
  1. XIGRIS [Suspect]
     Indication: SEPSIS
     Dosage: 960 UG, EVERY HOUR
     Route: 042
     Dates: start: 20090529, end: 20090602
  2. CLARITHROMYCIN [Concomitant]
     Indication: PNEUMONIA
     Dosage: 500 MG, 2/D
     Route: 042
     Dates: start: 20090529
  3. HYDROCORTISONE [Concomitant]
     Indication: SEPSIS
     Dosage: 50 MG, 4/D
     Route: 042
     Dates: start: 20090529
  4. RANITIDINE [Concomitant]
     Indication: GASTROOESOPHAGEAL REFLUX DISEASE
     Dosage: 50 MG, DAILY (1/D)
     Route: 042
     Dates: start: 20090529
  5. TAZOCIN [Concomitant]
     Indication: PNEUMONIA
     Dosage: 4.5 G, 3/D
     Dates: start: 20090529

REACTIONS (2)
  - DEATH [None]
  - PULMONARY HAEMORRHAGE [None]
